FAERS Safety Report 5853980-1 (Version None)
Quarter: 2008Q3

REPORT INFORMATION
  Report Type: 
  Country: None (occurrence: None)
  Receive Date: 20080822
  Receipt Date: 20080819
  Transmission Date: 20090109
  Serious: Yes (Hospitalization)
  Sender: FDA-Public Use
  Company Number: US-BRISTOL-MYERS SQUIBB COMPANY-14307292

PATIENT
  Age: 47 Year
  Sex: Male
  Weight: 84 kg

DRUGS (2)
  1. DASATINIB [Suspect]
     Indication: NON-SMALL CELL LUNG CANCER
     Route: 048
     Dates: start: 20080529
  2. ERLOTINIB [Suspect]
     Indication: NON-SMALL CELL LUNG CANCER
     Route: 048
     Dates: start: 20080520

REACTIONS (1)
  - PYREXIA [None]
